FAERS Safety Report 12620564 (Version 2)
Quarter: 2016Q3

REPORT INFORMATION
  Report Type: Report from Study
  Country: US (occurrence: US)
  Receive Date: 20160804
  Receipt Date: 20160831
  Transmission Date: 20161109
  Serious: Yes (Hospitalization, Other)
  Sender: FDA-Public Use
  Company Number: US-UCBSA-2015036392

PATIENT
  Age: 48 Year
  Sex: Female
  Weight: 67 kg

DRUGS (6)
  1. MERCAPTOPURINE. [Concomitant]
     Active Substance: MERCAPTOPURINE
     Indication: CROHN^S DISEASE
     Dosage: UNK
     Dates: start: 20160217, end: 20160317
  2. VITAMIN B12 [Concomitant]
     Active Substance: CYANOCOBALAMIN
     Indication: SUPPLEMENTATION THERAPY
     Dosage: UNK
  3. FOLATE [Concomitant]
     Active Substance: FOLATE SODIUM
     Indication: SUPPLEMENTATION THERAPY
     Dosage: UNK
  4. VITAMIN D3 [Concomitant]
     Active Substance: CHOLECALCIFEROL
     Indication: SUPPLEMENTATION THERAPY
     Dosage: UNK
  5. BUDESONIDE. [Concomitant]
     Active Substance: BUDESONIDE
     Indication: CROHN^S DISEASE
     Dosage: 3 MG, 3 CAP
  6. CERTOLIZUMAB PEGOL [Suspect]
     Active Substance: CERTOLIZUMAB PEGOL
     Indication: CROHN^S DISEASE
     Dosage: 400 MG, EV 4 WEEKS; EXP DATE: APR-2018, OCT-2018, NDC #50474-700-62
     Dates: start: 20150722, end: 20160316

REACTIONS (9)
  - Hospitalisation [Not Recovered/Not Resolved]
  - Nasopharyngitis [Recovered/Resolved]
  - Sinus disorder [Recovered/Resolved]
  - Headache [Recovered/Resolved]
  - Upper respiratory tract infection [Recovered/Resolved]
  - Pancreatitis [Recovered/Resolved]
  - Small intestinal obstruction [Recovered/Resolved]
  - Malaise [Not Recovered/Not Resolved]
  - Conjunctivitis [Recovered/Resolved]

NARRATIVE: CASE EVENT DATE: 20151104
